FAERS Safety Report 5877596-6 (Version None)
Quarter: 2008Q3

REPORT INFORMATION
  Report Type: 
  Country: None (occurrence: None)
  Receive Date: 20080911
  Receipt Date: 20080908
  Transmission Date: 20090109
  Serious: Yes (Other)
  Sender: FDA-Public Use
  Company Number: PHEH2008US07974

PATIENT
  Age: 55 Year
  Sex: Female
  Weight: 65.76 kg

DRUGS (9)
  1. RECLAST [Suspect]
     Dosage: 5 MG YEARLY
     Dates: start: 20080905, end: 20080905
  2. ACTOS [Concomitant]
  3. ALBUTEROL [Concomitant]
  4. PREMARIN [Concomitant]
  5. VYTORIN [Concomitant]
  6. WELLBUTRIN [Concomitant]
  7. MULTI-VITAMINS [Concomitant]
  8. NASALCROM [Concomitant]
  9. GEODON [Concomitant]

REACTIONS (1)
  - HYPOTENSION [None]
